FAERS Safety Report 11031568 (Version 1)
Quarter: 2015Q2

REPORT INFORMATION
  Report Type: Spontaneous
  Country: SI (occurrence: None)
  Receive Date: 20150413
  Receipt Date: 20150413
  Transmission Date: 20150821
  Serious: Yes (Hospitalization, Other)
  Sender: FDA-Public Use
  Company Number: FK201501677

PATIENT
  Age: 64 Year
  Sex: Male

DRUGS (5)
  1. SPASMEX (TROSPIUM CHLORIDE) [Concomitant]
  2. TORECAN [Concomitant]
     Active Substance: THIETHYLPERAZINE MALATE
  3. SELDIAR (LOPERAMIDE HYDROCHLORIDE) [Concomitant]
  4. NOLPAZA (PANTOPRAZOLE SODIUM SESQUIHYDRATE) [Concomitant]
  5. OXALIPLATIN. [Suspect]
     Active Substance: OXALIPLATIN
     Indication: COLON CANCER METASTATIC
     Route: 042
     Dates: start: 20150306, end: 20150306

REACTIONS (6)
  - Circulatory collapse [None]
  - Infusion related reaction [None]
  - Dyspnoea [None]
  - Angioedema [None]
  - Erythema [None]
  - Cyanosis [None]

NARRATIVE: CASE EVENT DATE: 20150306
